FAERS Safety Report 7018520-2 (Version None)
Quarter: 2010Q3

REPORT INFORMATION
  Report Type: 
  Country: None (occurrence: None)
  Receive Date: 20100928
  Receipt Date: 20100916
  Transmission Date: 20110219
  Serious: Yes (Hospitalization)
  Sender: FDA-Public Use
  Company Number: PE-JNJFOC-20100906241

PATIENT
  Age: 68 Year
  Sex: Female

DRUGS (5)
  1. REMICADE [Suspect]
     Indication: ANKYLOSING SPONDYLITIS
     Route: 042
  2. THYROXIN [Concomitant]
  3. RANITIDINE [Concomitant]
  4. PLASIL [Concomitant]
  5. TRAMADOL [Concomitant]

REACTIONS (8)
  - ABDOMINAL DISCOMFORT [None]
  - ANAEMIA [None]
  - ARTHRALGIA [None]
  - HYPOTENSION [None]
  - INCOHERENT [None]
  - LEUKOCYTOSIS [None]
  - OEDEMA [None]
  - SOMNOLENCE [None]
